FAERS Safety Report 6958250-6 (Version None)
Quarter: 2010Q3

REPORT INFORMATION
  Report Type: 
  Country: None (occurrence: None)
  Receive Date: 20100831
  Receipt Date: 20100820
  Transmission Date: 20110219
  Serious: Yes (Life-Threatening)
  Sender: FDA-Public Use
  Company Number: US-JNJFOC-20100807703

PATIENT
  Sex: Male
  Weight: 93.44 kg

DRUGS (6)
  1. REMICADE [Suspect]
     Indication: CROHN'S DISEASE
  2. REMICADE [Suspect]
  3. MERCAPTOPURINE [Concomitant]
     Indication: CROHN'S DISEASE
  4. QUESTRAN [Concomitant]
     Indication: CROHN'S DISEASE
  5. ANTIHISTAMINES [Concomitant]
     Indication: PREMEDICATION
  6. ACETAMINOPHEN [Concomitant]

REACTIONS (1)
  - GALLBLADDER CANCER [None]
